FAERS Safety Report 22348287 (Version 3)
Quarter: 2025Q3

REPORT INFORMATION
  Report Type: Spontaneous
  Country: EU (occurrence: EU)
  Receive Date: 20230522
  Receipt Date: 20250802
  Transmission Date: 20251021
  Serious: Yes (Hospitalization, Other)
  Sender: ALEXION PHARMACEUTICALS
  Company Number: 2023A111939

PATIENT
  Age: 45 Year
  Sex: Female

DRUGS (16)
  1. FULVESTRANT [Suspect]
     Active Substance: FULVESTRANT
     Indication: Breast cancer
  2. FULVESTRANT [Suspect]
     Active Substance: FULVESTRANT
  3. RIBOCICLIB [Suspect]
     Active Substance: RIBOCICLIB
     Route: 065
  4. RIBOCICLIB [Suspect]
     Active Substance: RIBOCICLIB
  5. LETROZOLE [Suspect]
     Active Substance: LETROZOLE
     Indication: Breast cancer
     Route: 065
  6. VITAMIN D3 [Suspect]
     Active Substance: CHOLECALCIFEROL
     Indication: Product used for unknown indication
  7. VITAMIN D3 [Suspect]
     Active Substance: CHOLECALCIFEROL
     Route: 065
  8. IBANDRONATE SODIUM [Suspect]
     Active Substance: IBANDRONATE SODIUM
     Indication: Breast cancer
  9. IBANDRONATE SODIUM [Suspect]
     Active Substance: IBANDRONATE SODIUM
  10. ZOLEDRONIC ACID [Suspect]
     Active Substance: ZOLEDRONIC ACID
     Indication: Breast cancer
  11. CARVEDILOL [Suspect]
     Active Substance: CARVEDILOL
     Indication: Product used for unknown indication
     Dosage: 12.5 MG, BID
  12. CARVEDILOL [Suspect]
     Active Substance: CARVEDILOL
     Dosage: 12.5 MG, BID
     Route: 065
  13. AMOXICILLIN\CLAVULANIC ACID [Suspect]
     Active Substance: AMOXICILLIN\CLAVULANIC ACID
     Indication: Upper respiratory tract infection
  14. RILMENIDINE [Concomitant]
     Active Substance: RILMENIDINE
     Indication: Product used for unknown indication
     Dosage: 1 MG, QD
     Route: 065
  15. CALCIUM [Concomitant]
     Active Substance: CALCIUM
     Indication: Product used for unknown indication
     Route: 065
  16. TELMISARTAN [Concomitant]
     Active Substance: TELMISARTAN
     Indication: Product used for unknown indication
     Dosage: 80 MG, QD
     Route: 065

REACTIONS (28)
  - Haemoglobin decreased [Recovered/Resolved]
  - Bladder hypertrophy [Unknown]
  - Isosthenuria [Unknown]
  - Breast cancer recurrent [Recovering/Resolving]
  - Carbohydrate antigen 15-3 increased [Unknown]
  - Glomerular filtration rate decreased [Unknown]
  - Creatinine renal clearance increased [Unknown]
  - Red blood cell count decreased [Unknown]
  - Haematocrit decreased [Recovered/Resolved]
  - Thrombocytopenia [Unknown]
  - Aspartate aminotransferase increased [Unknown]
  - Arthralgia [Unknown]
  - C-reactive protein increased [Unknown]
  - Neutropenia [Unknown]
  - White blood cell count increased [Unknown]
  - Blood creatinine increased [Unknown]
  - Cardiomegaly [Unknown]
  - Electrocardiogram PR shortened [Unknown]
  - Pyelitis [Unknown]
  - Upper respiratory tract infection [Unknown]
  - Metastases to bone [Unknown]
  - Pyrexia [Unknown]
  - Hydronephrosis [Unknown]
  - Carcinoembryonic antigen increased [Unknown]
  - Renal impairment [Recovering/Resolving]
  - Glomerular filtration rate decreased [Unknown]
  - Aspartate aminotransferase increased [Unknown]
  - Bladder hypertrophy [Unknown]

NARRATIVE: CASE EVENT DATE: 20181113
